FAERS Safety Report 14073929 (Version 1)
Quarter: 2017Q4

REPORT INFORMATION
  Report Type: Spontaneous
  Country: JP (occurrence: JP)
  Receive Date: 20171011
  Receipt Date: 20171011
  Transmission Date: 20180321
  Serious: Yes (Other)
  Sender: FDA-Public Use
  Company Number: JP-PFIZER INC-2017432467

PATIENT
  Age: 50 Year
  Sex: Female

DRUGS (4)
  1. LENDORMIN [Concomitant]
     Active Substance: BROTIZOLAM
     Dosage: UNK
  2. JZOLOFT 50MG [Suspect]
     Active Substance: SERTRALINE HYDROCHLORIDE
     Dosage: 50 MG, DAILY
     Route: 048
     Dates: start: 201612, end: 201709
  3. CEREKINON [Concomitant]
     Active Substance: TRIMEBUTINE
     Dosage: UNK
  4. BIOFERMIN [Concomitant]
     Active Substance: BACILLUS SUBTILIS\LACTOBACILLUS ACIDOPHILUS\STREPTOCOCCUS FAECAIS
     Dosage: UNK

REACTIONS (1)
  - Haemorrhage subcutaneous [Not Recovered/Not Resolved]

NARRATIVE: CASE EVENT DATE: 20170901
